FAERS Safety Report 16414818 (Version 3)
Quarter: 2019Q3

REPORT INFORMATION
  Report Type: Spontaneous
  Country: US (occurrence: US)
  Receive Date: 20190611
  Receipt Date: 20190919
  Transmission Date: 20191004
  Serious: No
  Sender: FDA-Public Use
  Company Number: US-PFIZER INC-2019238980

PATIENT
  Age: 67 Year
  Sex: Female
  Weight: 77.98 kg

DRUGS (23)
  1. LYRICA [Suspect]
     Active Substance: PREGABALIN
     Indication: PAIN
     Dosage: 150 MG, 2X/DAY
     Dates: start: 200901
  2. XELJANZ XR [Suspect]
     Active Substance: TOFACITINIB CITRATE
     Indication: FIBROMYALGIA
  3. AMLODIPINE BESILATE [Suspect]
     Active Substance: AMLODIPINE BESYLATE
     Indication: HYPERTENSION
     Dosage: 5 MG, DAILY
     Dates: start: 201506
  4. TIZANIDINE. [Suspect]
     Active Substance: TIZANIDINE
     Indication: FIBROMYALGIA
     Dosage: 4 MG, 1X/DAY(4 MG 1 AT NIGHT)
     Dates: start: 200901
  5. DULOXETINE. [Suspect]
     Active Substance: DULOXETINE
     Indication: RHEUMATOID ARTHRITIS
     Dosage: 30 MG, 1X/DAY
     Dates: start: 200901
  6. HYDROCODONE [Suspect]
     Active Substance: HYDROCODONE
     Indication: PAIN
     Dosage: 15 MG, AS NEEDED (7.5 MG, 2 A DAY AS NEEDED)
  7. METHOTREXATE. [Suspect]
     Active Substance: METHOTREXATE
     Indication: RENAL DISORDER
     Dosage: 7.5 MG, AS NEEDED
     Dates: start: 200901
  8. LYRICA [Suspect]
     Active Substance: PREGABALIN
     Indication: RHEUMATOID ARTHRITIS
     Dosage: 300 MG, DAILY (150 MG, 2 TABS A DAY)
     Dates: start: 2015
  9. OMEPRAZOLE. [Suspect]
     Active Substance: OMEPRAZOLE
     Indication: DYSPEPSIA
     Dosage: 20 MG, 1X/DAY
     Dates: start: 200901
  10. XELJANZ XR [Suspect]
     Active Substance: TOFACITINIB CITRATE
     Indication: PAIN
     Dosage: 11 MG, 1X/DAY
     Dates: start: 201706
  11. OMEPRAZOLE. [Suspect]
     Active Substance: OMEPRAZOLE
     Indication: GASTROOESOPHAGEAL REFLUX DISEASE
     Dosage: 20 MG, 1X/DAY
     Dates: start: 2018
  12. ALENDRONATE SODIUM. [Concomitant]
     Active Substance: ALENDRONATE SODIUM
     Dosage: 10 MG, WEEKLY
     Dates: start: 201906
  13. LYRICA [Suspect]
     Active Substance: PREGABALIN
     Indication: FIBROMYALGIA
  14. XELJANZ XR [Suspect]
     Active Substance: TOFACITINIB CITRATE
     Indication: RHEUMATOID ARTHRITIS
     Dosage: 11 MG, 1X/DAY
     Dates: start: 2018
  15. OMEPRAZOLE. [Suspect]
     Active Substance: OMEPRAZOLE
     Indication: PAIN
  16. ALENDRONATE SODIUM. [Concomitant]
     Active Substance: ALENDRONATE SODIUM
     Dosage: 40 MG, WEEKLY
  17. FOLIC ACID. [Suspect]
     Active Substance: FOLIC ACID
     Indication: RENAL DISORDER
     Dosage: 1 MG, 1X/DAY
     Dates: start: 2015
  18. FOLIC ACID. [Suspect]
     Active Substance: FOLIC ACID
     Indication: RHEUMATOID ARTHRITIS
     Dosage: 1 MG, 1X/DAY
     Dates: start: 200901
  19. DULOXETINE. [Suspect]
     Active Substance: DULOXETINE
     Indication: PAIN
     Dosage: 30 MG, 1X/DAY
     Dates: start: 2015
  20. HYDROCODONE [Suspect]
     Active Substance: HYDROCODONE
     Dosage: 7.5-325 1 TAB AS NEEDED
     Dates: start: 2015
  21. HYDROCODONE [Suspect]
     Active Substance: HYDROCODONE
     Dosage: UNK
     Dates: start: 201901
  22. METHOTREXATE. [Suspect]
     Active Substance: METHOTREXATE
     Indication: RHEUMATOID ARTHRITIS
     Dosage: 12.5 MG, WEEKLY (2.5 MG -5 TAB ONCE A WEEK)
     Dates: start: 2015
  23. TIZANIDINE. [Suspect]
     Active Substance: TIZANIDINE
     Indication: SLEEP DISORDER
     Dosage: 4 MG, 1X/DAY (4MG 1 TAB AT NIGHT )
     Dates: start: 2015

REACTIONS (6)
  - Pain [Recovered/Resolved]
  - Motor dysfunction [Not Recovered/Not Resolved]
  - Sleep disorder [Recovered/Resolved]
  - Back pain [Recovered/Resolved]
  - Joint stiffness [Recovered/Resolved]
  - Musculoskeletal pain [Recovered/Resolved]

NARRATIVE: CASE EVENT DATE: 201903
